FAERS Safety Report 19814447 (Version 2)
Quarter: 2021Q4

REPORT INFORMATION
  Report Type: Spontaneous
  Country: US (occurrence: US)
  Receive Date: 20210909
  Receipt Date: 20211020
  Transmission Date: 20220303
  Serious: No
  Sender: FDA-Public Use
  Company Number: US-PFIZER INC-202101038779

PATIENT
  Age: 63 Year
  Sex: Male
  Weight: 108.84 kg

DRUGS (3)
  1. GENOTROPIN [Suspect]
     Active Substance: SOMATROPIN
     Indication: Growth hormone deficiency
     Dosage: 0.4 MG, 7 DAYS A WEEK
     Dates: start: 20210811
  2. GENOTROPIN [Suspect]
     Active Substance: SOMATROPIN
     Indication: Diabetes mellitus
  3. GENOTROPIN [Suspect]
     Active Substance: SOMATROPIN
     Indication: Blood testosterone decreased

REACTIONS (11)
  - Heart rate increased [Recovered/Resolved]
  - Swollen tongue [Recovered/Resolved]
  - Swelling face [Recovered/Resolved]
  - Pharyngeal swelling [Recovered/Resolved]
  - Rhinorrhoea [Recovered/Resolved]
  - Speech disorder [Recovered/Resolved]
  - Dry mouth [Recovered/Resolved]
  - Dysarthria [Recovered/Resolved]
  - Productive cough [Recovered/Resolved]
  - Wheezing [Recovered/Resolved]
  - Reaction to preservatives [Recovered/Resolved]

NARRATIVE: CASE EVENT DATE: 20210811
